FAERS Safety Report 18254812 (Version 1)
Quarter: 2020Q3

REPORT INFORMATION
  Report Type: Spontaneous
  Country: US (occurrence: US)
  Receive Date: 20200910
  Receipt Date: 20200910
  Transmission Date: 20201103
  Serious: No
  Sender: FDA-Public Use
  Company Number: US-PFIZER INC-2020348263

PATIENT
  Sex: Female

DRUGS (1)
  1. LYRICA [Suspect]
     Active Substance: PREGABALIN
     Indication: BIPOLAR DISORDER
     Dosage: UNK (VERY SMALL DOSE)

REACTIONS (4)
  - Product use in unapproved indication [Unknown]
  - Fall [Unknown]
  - Off label use [Unknown]
  - Migraine [Unknown]
